FAERS Safety Report 9189852 (Version 1)
Quarter: 2013Q1

REPORT INFORMATION
  Report Type: Spontaneous
  Country: US (occurrence: US)
  Receive Date: 20130326
  Receipt Date: 20130326
  Transmission Date: 20140127
  Serious: Yes (Other)
  Sender: FDA-Public Use
  Company Number: US-PFIZER INC-2013095299

PATIENT
  Age: 60 Year
  Sex: Female
  Weight: 58.96 kg

DRUGS (3)
  1. DILANTIN [Suspect]
     Dosage: UNK, 1X/DAY
     Dates: start: 201209
  2. DILANTIN [Suspect]
     Dosage: 330 MG, 1X/DAY
  3. TOPAMAX [Concomitant]
     Dosage: 1 TABLET OF 100 MG IN MORNING AND 2 TABLETS OF 100 MG AT NIGHT (2X/DAY)

REACTIONS (5)
  - Gait disturbance [Recovering/Resolving]
  - Pain [Recovering/Resolving]
  - Bone disorder [Recovering/Resolving]
  - Arthropathy [Recovering/Resolving]
  - Insomnia [Recovering/Resolving]
